FAERS Safety Report 7060367-5 (Version None)
Quarter: 2010Q4

REPORT INFORMATION
  Report Type: 
  Country: None (occurrence: None)
  Receive Date: 20101025
  Receipt Date: 20101020
  Transmission Date: 20110411
  Serious: Yes (Congenital Anomaly)
  Sender: FDA-Public Use
  Company Number: D0069004A

PATIENT

DRUGS (5)
  1. TRIZIVIR [Suspect]
     Indication: HIV INFECTION
     Dates: start: 20081129
  2. VIREAD [Concomitant]
     Indication: HIV INFECTION
     Dosage: 245MG PER DAY
     Route: 065
     Dates: start: 20081129
  3. PREZISTA [Concomitant]
     Indication: HIV INFECTION
     Dosage: 1200MG PER DAY
     Route: 065
     Dates: start: 20081129
  4. ISENTRESS [Concomitant]
     Indication: HIV INFECTION
     Dosage: 800MG PER DAY
     Route: 065
     Dates: start: 20081129
  5. NORVIR [Concomitant]
     Route: 065
     Dates: start: 20081129

REACTIONS (2)
  - DRUG EXPOSURE DURING PREGNANCY [None]
  - MULTIPLE CONGENITAL ABNORMALITIES [None]
